FAERS Safety Report 5782666-7 (Version None)
Quarter: 2008Q2

REPORT INFORMATION
  Report Type: 
  Country: None (occurrence: None)
  Receive Date: 20080619
  Receipt Date: 20080619
  Transmission Date: 20081010
  Serious: Yes (Hospitalization)
  Sender: FDA-Public Use
  Company Number: None

PATIENT
  Age: 63 Year
  Sex: Female
  Weight: 46 kg

DRUGS (7)
  1. TARCEVA [Suspect]
     Indication: OESOPHAGEAL CARCINOMA
     Dosage: 150 MG QD P.O
     Route: 048
     Dates: start: 20070419, end: 20070502
  2. METOPROLOL SUCCINATE [Concomitant]
  3. ASPIRIN [Concomitant]
  4. MINTRAN [Concomitant]
  5. NORVASC [Concomitant]
  6. LIPITOR [Concomitant]
  7. CALTRATE [Concomitant]

REACTIONS (3)
  - CLOSTRIDIAL INFECTION [None]
  - DEHYDRATION [None]
  - DIARRHOEA [None]
